FAERS Safety Report 21085266 (Version 2)
Quarter: 2022Q3

REPORT INFORMATION
  Report Type: Spontaneous
  Country: JP (occurrence: JP)
  Receive Date: 20220714
  Receipt Date: 20220725
  Transmission Date: 20221026
  Serious: Yes (Other)
  Sender: FDA-Public Use
  Company Number: JP-KYOWAKIRIN-2022AKK010499

PATIENT

DRUGS (2)
  1. DARBEPOETIN ALFA [Suspect]
     Active Substance: DARBEPOETIN ALFA
     Indication: Nephrogenic anaemia
     Dosage: UNK
     Route: 058
  2. NIVOLUMAB [Concomitant]
     Active Substance: NIVOLUMAB
     Indication: Product used for unknown indication
     Dosage: UNK
     Route: 065

REACTIONS (1)
  - Oesophageal carcinoma [Unknown]

NARRATIVE: CASE EVENT DATE: 20220101
